FAERS Safety Report 9160376 (Version 1)
Quarter: 2013Q1

REPORT INFORMATION
  Report Type: Spontaneous
  Country: DK (occurrence: None)
  Receive Date: 20130215
  Receipt Date: 20130215
  Transmission Date: 20140127
  Serious: Yes (Hospitalization)
  Sender: FDA-Public Use
  Company Number: 2013MA001143

PATIENT
  Sex: Female

DRUGS (3)
  1. TRAMADOL HYDROCHLORIDE TABLETS, 50 MG (PUREPAC) (TRAMADOL) [Suspect]
     Indication: ANALGESIC THERAPY
  2. NITROOFURANTOIN [Suspect]
     Indication: INFECTION
  3. AMITRIPTYLINE [Concomitant]

REACTIONS (2)
  - Dermatitis contact [None]
  - Adverse event [None]
